FAERS Safety Report 9946592 (Version 1)
Quarter: 2014Q1

REPORT INFORMATION
  Report Type: Report from Study
  Country: US (occurrence: US)
  Receive Date: 20140303
  Receipt Date: 20140303
  Transmission Date: 20141002
  Serious: No
  Sender: FDA-Public Use
  Company Number: US-ABBVIE-13P-163-1063156-00

PATIENT
  Age: 58 Year
  Sex: Female

DRUGS (14)
  1. HUMIRA [Suspect]
     Indication: CROHN^S DISEASE
     Dates: start: 201206
  2. WARFARIN [Concomitant]
     Indication: DEEP VEIN THROMBOSIS
     Dosage: TUES, WED, THURS, SAT AND SUN
  3. WARFARIN [Concomitant]
     Dosage: MON AND FRI
  4. PAROXETINE [Concomitant]
     Indication: DEPRESSION
  5. BUSPAR [Concomitant]
     Indication: DEPRESSION
  6. BUSPAR [Concomitant]
     Indication: ANXIETY
  7. VITAMINS [Concomitant]
     Indication: PRODUCT USED FOR UNKNOWN INDICATION
  8. NICOTINE [Concomitant]
     Indication: PRODUCT USED FOR UNKNOWN INDICATION
     Dosage: PATCH
  9. CALCIUM WITH D [Concomitant]
     Indication: PRODUCT USED FOR UNKNOWN INDICATION
  10. MAGNESIUM [Concomitant]
     Indication: PRODUCT USED FOR UNKNOWN INDICATION
  11. ZINC [Concomitant]
     Indication: PRODUCT USED FOR UNKNOWN INDICATION
  12. HYDROCODONE WITH ACETAMINOPHEN [Concomitant]
     Indication: ANKYLOSING SPONDYLITIS
     Dates: start: 201205
  13. HYDROCODONE WITH ACETAMINOPHEN [Concomitant]
     Indication: MUSCLE SPASMS
  14. AUGMENTIN [Concomitant]
     Indication: PRODUCT USED FOR UNKNOWN INDICATION

REACTIONS (4)
  - Animal bite [Unknown]
  - Skin infection [Recovered/Resolved]
  - Crohn^s disease [Recovering/Resolving]
  - Fistula [Unknown]
